FAERS Safety Report 8257869-2 (Version None)
Quarter: 2012Q1

REPORT INFORMATION
  Report Type: 
  Country: None (occurrence: None)
  Receive Date: 20111211
  Receipt Date: 20111014
  Transmission Date: 20120608
  Serious: No
  Sender: FDA-Public Use
  Company Number: 201110039

PATIENT
  Age: 56 Year
  Sex: Female
  Weight: 58.9676 kg

DRUGS (4)
  1. XIAFLEX (CLOSTRIDIAL COLLAGENASE) [Suspect]
     Indication: DUPUYTREN'S CONTRACTURE
     Dosage: 1 IN 1 D, INTRALESIONAL
     Route: 026
     Dates: start: 20111010, end: 20111010
  2. LISINOPRIL (LISINOPRIL DIHYDRATE) [Concomitant]
  3. MOTRIN [Suspect]
     Indication: PAIN IN EXTREMITY
     Dosage: 2 PILLS
     Dates: start: 20111010, end: 20111010
  4. METOPROLOL TARTRATE [Concomitant]

REACTIONS (5)
  - CONTUSION [None]
  - HYPERSENSITIVITY [None]
  - PAIN IN EXTREMITY [None]
  - LACERATION [None]
  - INJECTION SITE PRURITUS [None]
